FAERS Safety Report 23762750 (Version 1)
Quarter: 2024Q2

REPORT INFORMATION
  Report Type: Spontaneous
  Country: CA (occurrence: CA)
  Receive Date: 20240419
  Receipt Date: 20240419
  Transmission Date: 20240716
  Serious: Yes (Other)
  Sender: FDA-Public Use
  Company Number: CA-TEVA-VS-3184426

PATIENT
  Age: 80 Year
  Sex: Female

DRUGS (1)
  1. METHOTREXATE SODIUM [Suspect]
     Active Substance: METHOTREXATE SODIUM
     Indication: Product used for unknown indication
     Dosage: LIQUID INTRAMUSCULAR, INJ 25.0MG/ML
     Route: 030

REACTIONS (2)
  - Neutropenia [Unknown]
  - Thrombocytopenia [Unknown]
